FAERS Safety Report 7997899-9 (Version None)
Quarter: 2011Q4

REPORT INFORMATION
  Report Type: 
  Country: None (occurrence: None)
  Receive Date: 20111221
  Receipt Date: 20110119
  Transmission Date: 20120403
  Serious: No
  Sender: FDA-Public Use
  Company Number: US-PFIZER INC-K201100094

PATIENT
  Sex: Female

DRUGS (1)
  1. EPIPEN JR. [Suspect]
     Indication: FOOD ALLERGY
     Dosage: 0.15 MG, SINGLE
     Route: 030
     Dates: start: 20110118, end: 20110118

REACTIONS (2)
  - INJECTION SITE INJURY [None]
  - INJECTION SITE PAIN [None]
